FAERS Safety Report 4488090-1 (Version None)
Quarter: 2004Q4

REPORT INFORMATION
  Report Type: 
  Country: None (occurrence: None)
  Receive Date: 20041028
  Receipt Date: 20041021
  Transmission Date: 20050328
  Serious: Yes (Other)
  Sender: FDA-Public Use
  Company Number: 200404065

PATIENT
  Sex: Female

DRUGS (10)
  1. TAGAMET [Suspect]
     Indication: DUODENAL ULCER
  2. ATARAX [Concomitant]
  3. XYLOCAINE [Concomitant]
  4. FLOMOX [Concomitant]
  5. MICARDIS [Concomitant]
  6. BAYASPIRIN [Concomitant]
  7. SENNOSIDES A + B [Concomitant]
  8. ALOSENN [Concomitant]
  9. GLUCOBAY [Concomitant]
  10. RENAGEL [Concomitant]

REACTIONS (1)
  - DEPRESSED LEVEL OF CONSCIOUSNESS [None]
